FAERS Safety Report 11855905 (Version 1)
Quarter: 2015Q4

REPORT INFORMATION
  Report Type: Spontaneous
  Country: US (occurrence: US)
  Receive Date: 20151221
  Receipt Date: 20151221
  Transmission Date: 20160305
  Serious: No
  Sender: FDA-Public Use
  Company Number: US-ELI_LILLY_AND_COMPANY-US201512000597

PATIENT
  Sex: Female

DRUGS (7)
  1. HUMALOG [Suspect]
     Active Substance: INSULIN LISPRO
     Indication: TYPE 2 DIABETES MELLITUS
     Dosage: UNK UNK, UNKNOWN
     Route: 065
     Dates: start: 201510
  2. TRULICITY [Suspect]
     Active Substance: DULAGLUTIDE
     Dosage: 1.5 MG, UNKNOWN
     Route: 065
  3. HUMALOG [Suspect]
     Active Substance: INSULIN LISPRO
     Indication: TYPE 2 DIABETES MELLITUS
     Dosage: 40 IU, UNKNOWN
     Route: 065
     Dates: start: 201510
  4. HUMALOG [Suspect]
     Active Substance: INSULIN LISPRO
     Dosage: 60 IU, UNKNOWN
     Route: 065
     Dates: start: 201510
  5. TRULICITY [Suspect]
     Active Substance: DULAGLUTIDE
     Indication: TYPE 2 DIABETES MELLITUS
     Dosage: 0.75 MG, UNKNOWN
     Route: 065
     Dates: start: 201510
  6. HUMALOG [Suspect]
     Active Substance: INSULIN LISPRO
     Dosage: 40 IU, UNKNOWN
     Route: 065
     Dates: start: 201510
  7. TOUJEO [Concomitant]
     Active Substance: INSULIN GLARGINE
     Dosage: 60 IU, QD

REACTIONS (3)
  - Drug dispensing error [Unknown]
  - Thyroid neoplasm [Unknown]
  - Blood glucose increased [Unknown]
